FAERS Safety Report 11525554 (Version 1)
Quarter: 2015Q3

REPORT INFORMATION
  Report Type: Spontaneous
  Country: US (occurrence: US)
  Receive Date: 20150918
  Receipt Date: 20150918
  Transmission Date: 20151125
  Serious: Yes (Other)
  Sender: FDA-Public Use
  Company Number: US-TAKEDA-TPA2012A01852

PATIENT

DRUGS (3)
  1. GLIPIZIDE. [Concomitant]
     Active Substance: GLIPIZIDE
     Dates: start: 20120803
  2. TOLINASE [Concomitant]
     Active Substance: TOLAZAMIDE
     Dates: start: 20120803
  3. ACTOS [Suspect]
     Active Substance: PIOGLITAZONE HYDROCHLORIDE
     Indication: TYPE 2 DIABETES MELLITUS
     Dosage: UNK
     Route: 048
     Dates: start: 200808

REACTIONS (4)
  - Bladder cancer [Unknown]
  - Vomiting [Unknown]
  - Dysuria [Unknown]
  - Depression [Unknown]
